FAERS Safety Report 7673018-3 (Version None)
Quarter: 2011Q3

REPORT INFORMATION
  Report Type: 
  Country: None (occurrence: None)
  Receive Date: 20110809
  Receipt Date: 20110729
  Transmission Date: 20111222
  Serious: Yes (Hospitalization)
  Sender: FDA-Public Use
  Company Number: FR-GENENTECH-322531

PATIENT
  Sex: Male
  Weight: 84 kg

DRUGS (11)
  1. MABTHERA [Suspect]
     Indication: MANTLE CELL LYMPHOMA
     Dosage: UNK
     Route: 041
     Dates: start: 20110527, end: 20110527
  2. DEXAMETHASONE [Suspect]
     Indication: MANTLE CELL LYMPHOMA
     Dosage: UNK
     Route: 041
     Dates: start: 20110524, end: 20110527
  3. DEXAMETHASONE [Suspect]
     Dosage: UNK
     Route: 041
     Dates: start: 20110616, end: 20110619
  4. LERCANIDIPINE [Concomitant]
     Indication: HYPERTENSION
     Dosage: UNK
     Route: 048
  5. CISPLATIN [Suspect]
     Indication: MANTLE CELL LYMPHOMA
     Dosage: UNK
     Route: 041
     Dates: start: 20110524, end: 20110524
  6. MABTHERA [Suspect]
     Dosage: UNK
     Route: 041
     Dates: start: 20110616, end: 20110616
  7. CYTARABINE [Suspect]
     Dosage: UNK
     Route: 041
     Dates: start: 20110616, end: 20110617
  8. CISPLATIN [Suspect]
     Dosage: UNK
     Route: 041
     Dates: start: 20110616, end: 20110616
  9. OMEPRAZOLE [Concomitant]
     Indication: GASTROOESOPHAGEAL REFLUX DISEASE
     Dosage: UNK
     Route: 048
  10. CYTARABINE [Suspect]
     Indication: MANTLE CELL LYMPHOMA
     Dosage: UNK
     Route: 041
     Dates: start: 20110524, end: 20110525
  11. PEGFILGRASTIM [Concomitant]
     Indication: PRODUCT USED FOR UNKNOWN INDICATION
     Dosage: UNK

REACTIONS (3)
  - TUMOUR LYSIS SYNDROME [None]
  - RENAL FAILURE ACUTE [None]
  - FEBRILE BONE MARROW APLASIA [None]
